FAERS Safety Report 4577187-3 (Version None)
Quarter: 2005Q1

REPORT INFORMATION
  Report Type: 
  Country: None (occurrence: None)
  Receive Date: 20050207
  Receipt Date: 20050121
  Transmission Date: 20050727
  Serious: Yes (Other)
  Sender: FDA-Public Use
  Company Number: 2005-DE-00262DE

PATIENT
  Age: 35 Year
  Sex: Female

DRUGS (3)
  1. CLONIDINE [Suspect]
     Indication: BLOOD PRESSURE ABNORMAL
     Dosage: SEE IMAGE
     Route: 048
     Dates: end: 20041201
  2. CLONIDINE [Suspect]
     Indication: BLOOD PRESSURE ABNORMAL
     Dosage: SEE IMAGE
     Route: 048
     Dates: start: 20041201
  3. BELOC ZOC [Concomitant]

REACTIONS (7)
  - DRUG WITHDRAWAL SYNDROME [None]
  - FEAR [None]
  - HEADACHE [None]
  - HYPERTENSIVE CRISIS [None]
  - HYPOAESTHESIA [None]
  - NAUSEA [None]
  - TREMOR [None]
